FAERS Safety Report 4500470-4 (Version None)
Quarter: 2004Q3

REPORT INFORMATION
  Report Type: 
  Country: None (occurrence: None)
  Receive Date: 20040928
  Receipt Date: 20040805
  Transmission Date: 20050211
  Serious: No
  Sender: FDA-Public Use
  Company Number: 04P-163-0269317-00

PATIENT
  Age: 69 Year
  Sex: Female
  Weight: 64.4108 kg

DRUGS (11)
  1. HUMIRA [Suspect]
     Indication: RHEUMATOID ARTHRITIS
     Dosage: 40 MG, 1 IN 2 WK, SUBCUTANEOUS
     Route: 058
     Dates: start: 20030101, end: 20040501
  2. HUMIRA [Suspect]
     Indication: RHEUMATOID ARTHRITIS
     Dosage: 40 MG, 1 IN 2 WK, SUBCUTANEOUS
     Route: 058
     Dates: start: 20040601
  3. CAPTOPRIL [Concomitant]
  4. ATENOLOL HYDROCHLOROTHIAZIDE [Concomitant]
  5. THYROID TAB [Concomitant]
  6. PREDNISOLONE [Concomitant]
  7. FLUVASTATIN SODIUM [Concomitant]
  8. ASPIRIN [Concomitant]
  9. CALCIUM CARBONATE [Concomitant]
  10. M.V.I. [Concomitant]
  11. LATANOPROST [Concomitant]

REACTIONS (3)
  - CYSTITIS [None]
  - DRUG EFFECT DECREASED [None]
  - INJECTION SITE BURNING [None]
